FAERS Safety Report 7066149-2 (Version None)
Quarter: 2010Q4

REPORT INFORMATION
  Report Type: 
  Country: None (occurrence: None)
  Receive Date: 20101027
  Receipt Date: 20100730
  Transmission Date: 20110411
  Serious: Yes (Hospitalization, Other)
  Sender: FDA-Public Use
  Company Number: HQWYE597626AUG04

PATIENT
  Sex: Female
  Weight: 83.99 kg

DRUGS (10)
  1. PREMPRO [Suspect]
     Indication: HOT FLUSH
     Dosage: UNKNOWN
     Route: 048
     Dates: start: 19980601, end: 19991101
  2. PROVERA [Suspect]
  3. MEDROXYPROGESTERONE [Suspect]
  4. GLYBURIDE [Concomitant]
  5. ATENOLOL [Concomitant]
  6. DIOVAN HCT [Concomitant]
  7. HYDROCHLOROTHIAZIDE [Concomitant]
  8. LEVOTHYROXINE SODIUM [Concomitant]
  9. PREMARIN [Suspect]
     Indication: HOT FLUSH
     Dosage: UNKNOWN
     Route: 048
     Dates: start: 19700101, end: 19991201
  10. LEVOTHYROXINE [Concomitant]

REACTIONS (1)
  - BREAST CANCER [None]
